FAERS Safety Report 4737942-3 (Version None)
Quarter: 2005Q3

REPORT INFORMATION
  Report Type: 
  Country: None (occurrence: None)
  Receive Date: 20050805
  Receipt Date: 20050801
  Transmission Date: 20060218
  Serious: No
  Sender: FDA-Public Use
  Company Number: B0389271A

PATIENT
  Sex: Male

DRUGS (2)
  1. DIGOXIN [Suspect]
     Indication: SUPRAVENTRICULAR TACHYCARDIA
  2. ADENOSINE [Concomitant]

REACTIONS (6)
  - ABDOMINAL PAIN [None]
  - BRADYARRHYTHMIA [None]
  - DRUG TOXICITY [None]
  - NAUSEA [None]
  - NECROTISING ENTEROCOLITIS NEONATAL [None]
  - VOMITING [None]
